FAERS Safety Report 8763281 (Version 1)
Quarter: 2012Q4

REPORT INFORMATION
  Report Type: Spontaneous
  Country: US (occurrence: None)
  Receive Date: 20120831
  Receipt Date: 20120831
  Transmission Date: 20130627
  Serious: No
  Sender: FDA-Public Use
  Company Number: None

PATIENT
  Age: 37 Year
  Sex: Female
  Weight: 71.22 kg

DRUGS (1)
  1. MONISTAT 7 [Suspect]
     Dosage: 1 tube nightly
     Route: 067
     Dates: start: 20120828, end: 20120829

REACTIONS (3)
  - Burning sensation [None]
  - Pruritus genital [None]
  - Oedema genital [None]
